FAERS Safety Report 21024259 (Version 1)
Quarter: 2022Q2

REPORT INFORMATION
  Report Type: Spontaneous
  Country: US (occurrence: None)
  Receive Date: 20220629
  Receipt Date: 20220629
  Transmission Date: 20220720
  Serious: Yes (Life-Threatening, Hospitalization)
  Sender: FDA-Public Use
  Company Number: None

PATIENT
  Age: 78 Year
  Sex: Female
  Weight: 58 kg

DRUGS (1)
  1. PACLITAXEL [Suspect]
     Active Substance: PACLITAXEL
     Indication: Breast cancer
     Dosage: FREQUENCY : ONCE;?
     Route: 042
     Dates: start: 20220628, end: 20220628

REACTIONS (3)
  - Pulse absent [None]
  - Loss of consciousness [None]
  - Acute respiratory failure [None]

NARRATIVE: CASE EVENT DATE: 20220628
